FAERS Safety Report 18190322 (Version 3)
Quarter: 2020Q3

REPORT INFORMATION
  Report Type: Report from Study
  Country: US (occurrence: US)
  Receive Date: 20200824
  Receipt Date: 20200909
  Transmission Date: 20201103
  Serious: Yes (Death, Life-Threatening, Hospitalization)
  Sender: FDA-Public Use
  Company Number: US-PFIZER INC-2020318051

PATIENT
  Age: 3 Year
  Sex: Male
  Weight: 10 kg

DRUGS (4)
  1. VINORELBINE TARTRATE. [Concomitant]
     Active Substance: VINORELBINE TARTRATE
     Indication: EMBRYONAL RHABDOMYOSARCOMA
     Dosage: 25 MG/M2 FOR PATIENTS }= 0.6 M2 OR PER DOSING TABLE FOR PATIENTS { 0.6M2 IV ON DAYS 1, 8, AND 15
     Route: 042
  2. CYCLOPHOSPHAMIDE. [Suspect]
     Active Substance: CYCLOPHOSPHAMIDE
     Indication: EMBRYONAL RHABDOMYOSARCOMA
     Dosage: UNK
     Route: 042
     Dates: end: 20200623
  3. VINCRISTINE SULFATE. [Suspect]
     Active Substance: VINCRISTINE SULFATE
     Indication: EMBRYONAL RHABDOMYOSARCOMA
     Dosage: UNK
     Route: 042
     Dates: start: 20200720
  4. TEMSIROLIMUS. [Suspect]
     Active Substance: TEMSIROLIMUS
     Indication: EMBRYONAL RHABDOMYOSARCOMA
     Dosage: 15 MG/M2
     Route: 042
     Dates: end: 20200707

REACTIONS (3)
  - Acute kidney injury [Unknown]
  - Large intestinal obstruction [Unknown]
  - Sepsis [Fatal]

NARRATIVE: CASE EVENT DATE: 20200803
